FAERS Safety Report 24552234 (Version 1)
Quarter: 2024Q4

REPORT INFORMATION
  Report Type: Spontaneous
  Country: US (occurrence: US)
  Receive Date: 20241026
  Receipt Date: 20241026
  Transmission Date: 20250115
  Serious: No
  Sender: ALEXION PHARMACEUTICALS
  Company Number: US-AstraZeneca-CH-00725087A

PATIENT

DRUGS (4)
  1. XIGDUO XR [Suspect]
     Active Substance: DAPAGLIFLOZIN PROPANEDIOL\METFORMIN HYDROCHLORIDE
  2. XIGDUO XR [Suspect]
     Active Substance: DAPAGLIFLOZIN PROPANEDIOL\METFORMIN HYDROCHLORIDE
  3. XIGDUO XR [Suspect]
     Active Substance: DAPAGLIFLOZIN PROPANEDIOL\METFORMIN HYDROCHLORIDE
  4. XIGDUO XR [Suspect]
     Active Substance: DAPAGLIFLOZIN PROPANEDIOL\METFORMIN HYDROCHLORIDE

REACTIONS (10)
  - Abdominal discomfort [Unknown]
  - Nausea [Unknown]
  - Cyst [Unknown]
  - Hot flush [Unknown]
  - Joint swelling [Unknown]
  - Rhinorrhoea [Unknown]
  - Somnolence [Unknown]
  - Circumstance or information capable of leading to medication error [Unknown]
  - Therapy interrupted [Unknown]
  - Gait inability [Unknown]
